FAERS Safety Report 10241693 (Version 1)
Quarter: 2014Q2

REPORT INFORMATION
  Report Type: Spontaneous
  Country: GB (occurrence: GB)
  Receive Date: 20140617
  Receipt Date: 20140617
  Transmission Date: 20141212
  Serious: Yes (Hospitalization, Other)
  Sender: FDA-Public Use
  Company Number: GB-SA-2014SA073106

PATIENT
  Age: 58 Year
  Sex: Male
  Weight: 105 kg

DRUGS (13)
  1. LANTUS [Suspect]
     Indication: PRODUCT USED FOR UNKNOWN INDICATION
     Dosage: 26 UNIT, ONCE A DAY AT NIGHT
     Route: 058
  2. VICKS DRY COUGH [Suspect]
     Indication: PRODUCTIVE COUGH
     Dosage: A SPOONFUL OF SYRUP, ONCE ONLY
     Route: 048
     Dates: start: 20140311, end: 20140311
  3. VICKS DRY COUGH [Suspect]
     Indication: OROPHARYNGEAL PAIN
     Dosage: A SPOONFUL OF SYRUP, ONCE ONLY
     Route: 048
     Dates: start: 20140311, end: 20140311
  4. VICKS DRY COUGH [Suspect]
     Indication: PRODUCTIVE COUGH
     Route: 065
  5. VICKS DRY COUGH [Suspect]
     Indication: OROPHARYNGEAL PAIN
     Route: 065
  6. ASPIRIN [Concomitant]
     Dosage: 75 MG, ONCE A DAY
     Route: 048
  7. ATORVASTATIN [Concomitant]
     Dosage: 40 MG, ONCE A DAY AT NIGHT
     Route: 048
  8. BISOPROLOL [Concomitant]
     Dosage: 5 MG, ONCE A DAY
     Route: 048
  9. ISOSORBIDE [Concomitant]
     Dosage: 10 MG, 2 TIMES A DAY
     Route: 048
  10. METFORMIN [Concomitant]
     Indication: DIABETES MELLITUS
     Dosage: 1000 MG, 2 TIMES A DAY
     Route: 048
  11. OMEPRAZOLE [Concomitant]
     Dosage: 20 MG, ONCE A DAY
     Route: 048
  12. RAMIPRIL [Concomitant]
     Dosage: 10 MG, ONCE A DAY
     Route: 048
  13. CLARITHROMYCIN [Concomitant]
     Dosage: 1 TABLET 2 /DAY FOR 7 DAYS

REACTIONS (15)
  - Anaphylactic reaction [Recovered/Resolved]
  - Dyspnoea [Recovered/Resolved]
  - Wheezing [Recovered/Resolved]
  - Pharyngeal oedema [Recovered/Resolved]
  - Dysphonia [Recovered/Resolved]
  - Swelling face [Recovered/Resolved]
  - Mouth swelling [Recovered/Resolved]
  - Lip swelling [Recovered/Resolved]
  - Eye swelling [Recovered/Resolved]
  - Oropharyngeal pain [Recovered/Resolved]
  - Condition aggravated [Recovered/Resolved]
  - Hypoaesthesia [Recovered/Resolved]
  - Hypoaesthesia oral [Recovered/Resolved]
  - Off label use [Unknown]
  - Mean cell haemoglobin increased [Recovered/Resolved]
